FAERS Safety Report 17151284 (Version 5)
Quarter: 2020Q1

REPORT INFORMATION
  Report Type: Spontaneous
  Country: US (occurrence: US)
  Receive Date: 20191213
  Receipt Date: 20200305
  Transmission Date: 20200409
  Serious: No
  Sender: FDA-Public Use
  Company Number: US-PFIZER INC-2019533593

PATIENT
  Age: 47 Year
  Sex: Female

DRUGS (2)
  1. IBRANCE [Suspect]
     Active Substance: PALBOCICLIB
     Indication: BREAST CANCER FEMALE
     Dosage: 125 MG, CYCLIC (TAKE 1 CAPSULE BY MOUTH ONCE DAILY WITH FOOD FOR 21 DAYS ON AND 7 DAYS OFF)
     Route: 048
     Dates: start: 201911, end: 20200107
  2. IBRANCE [Suspect]
     Active Substance: PALBOCICLIB
     Dosage: 125 MG, CYCLIC (TAKE 1 CAPSULE BY MOUTH ONCE DAILY WITH FOOD FOR 21 DAYS ON AND 7 DAYS OFF)
     Route: 048
     Dates: start: 201911

REACTIONS (7)
  - Rash pruritic [Unknown]
  - Bone pain [Unknown]
  - Myalgia [Unknown]
  - Dry skin [Unknown]
  - Pain of skin [Unknown]
  - Nausea [Unknown]
  - Alopecia [Unknown]
